FAERS Safety Report 13119918 (Version 1)
Quarter: 2017Q1

REPORT INFORMATION
  Report Type: Spontaneous
  Country: US (occurrence: US)
  Receive Date: 20170117
  Receipt Date: 20170117
  Transmission Date: 20170428
  Serious: No
  Sender: FDA-Public Use
  Company Number: US-009507513-1701USA003356

PATIENT
  Age: 55 Year
  Sex: Female

DRUGS (1)
  1. ZEPATIER [Suspect]
     Active Substance: ELBASVIR\GRAZOPREVIR
     Indication: HEPATITIS
     Dosage: 50/100 MG ONCE DAILY
     Route: 048
     Dates: start: 20161208

REACTIONS (2)
  - Migraine [Unknown]
  - Gastrooesophageal reflux disease [Unknown]
